FAERS Safety Report 5089887-X (Version None)
Quarter: 2006Q3

REPORT INFORMATION
  Report Type: 
  Country: None (occurrence: None)
  Receive Date: 20060823
  Receipt Date: 20060811
  Transmission Date: 20061208
  Serious: Yes (Hospitalization, Other)
  Sender: FDA-Public Use
  Company Number: 2006S1000145

PATIENT
  Age: 39 Year
  Sex: Male
  Weight: 81.8 kg

DRUGS (6)
  1. CUBICIN [Suspect]
     Indication: BACTERAEMIA
     Dosage: 5.13 MG/KG; Q24H
     Dates: start: 20060226, end: 20060327
  2. LINEZOLID [Concomitant]
  3. PIPERACILLIN SODIUM/TAZOBACTAM SODIUM [Concomitant]
  4. CEFEPIME [Concomitant]
  5. SULFAMETHOXAZOLE + TRIMETHOPRIM [Concomitant]
  6. VANCOMYCIN [Concomitant]

REACTIONS (12)
  - ACINETOBACTER BACTERAEMIA [None]
  - ACINETOBACTER INFECTION [None]
  - AORTIC VALVE INCOMPETENCE [None]
  - BLOOD CULTURE POSITIVE [None]
  - CHEST PAIN [None]
  - CHILLS [None]
  - DRUG SCREEN POSITIVE [None]
  - DYSPNOEA [None]
  - ENDOCARDITIS [None]
  - PYREXIA [None]
  - REFUSAL OF TREATMENT BY PATIENT [None]
  - STAPHYLOCOCCAL INFECTION [None]
